FAERS Safety Report 6321707-5 (Version None)
Quarter: 2009Q3

REPORT INFORMATION
  Report Type: 
  Country: None (occurrence: None)
  Receive Date: 20090821
  Receipt Date: 20090821
  Transmission Date: 20100115
  Serious: Yes (Hospitalization)
  Sender: FDA-Public Use
  Company Number: None

PATIENT
  Age: 77 Year
  Sex: Female
  Weight: 61.2356 kg

DRUGS (2)
  1. GEMFIBROZIL [Suspect]
     Indication: BLOOD CHOLESTEROL
     Dosage: 600 MG 2 X A DAY
  2. GEMFIBROZIL [Suspect]
     Indication: BLOOD TRIGLYCERIDES
     Dosage: 600 MG 2 X A DAY

REACTIONS (2)
  - SWELLING FACE [None]
  - SWOLLEN TONGUE [None]
